FAERS Safety Report 9691464 (Version 2)
Quarter: 2013Q4

REPORT INFORMATION
  Report Type: Spontaneous
  Country: US (occurrence: US)
  Receive Date: 20131115
  Receipt Date: 20131119
  Transmission Date: 20140711
  Serious: Yes (Other)
  Sender: FDA-Public Use
  Company Number: US-009507513-1311USA005438

PATIENT
  Age: 7 Year
  Sex: Male

DRUGS (14)
  1. SINGULAIR [Suspect]
     Indication: PNEUMONIA
     Dosage: 5 MG, QD
     Route: 048
  2. SINGULAIR [Suspect]
     Indication: LUNG DISORDER
     Dosage: UNK
     Route: 065
  3. SINGULAIR [Suspect]
     Indication: ASTHMA
     Dosage: UNK
     Route: 065
  4. SINGULAIR [Suspect]
     Indication: PNEUMONIA
     Dosage: UNK
     Route: 065
  5. SINGULAIR [Suspect]
     Indication: LUNG DISORDER
     Dosage: 5 MG, QD
     Route: 048
  6. SINGULAIR [Suspect]
     Indication: ASTHMA
     Dosage: UNK
     Route: 065
  7. SINGULAIR [Suspect]
     Indication: LUNG DISORDER
     Dosage: 5 MG, QD
     Route: 048
  8. SINGULAIR [Suspect]
     Indication: LUNG DISORDER
     Dosage: UNK
     Route: 065
  9. SINGULAIR [Suspect]
     Indication: ASTHMA
     Dosage: 5 MG, QD
     Route: 048
  10. SINGULAIR [Suspect]
     Indication: PNEUMONIA
     Dosage: 5 MG, QD
     Route: 048
  11. SINGULAIR [Suspect]
     Indication: ASTHMA
     Dosage: 5 MG, QD
     Route: 048
  12. SINGULAIR [Suspect]
     Indication: PNEUMONIA
     Dosage: UNK
     Route: 065
  13. ADVAIR [Concomitant]
     Indication: PRODUCT USED FOR UNKNOWN INDICATION
     Route: 065
  14. XOPENEX [Concomitant]
     Indication: PRODUCT USED FOR UNKNOWN INDICATION
     Route: 065

REACTIONS (2)
  - Aggression [Unknown]
  - Psychomotor hyperactivity [Unknown]
